FAERS Safety Report 15493514 (Version 1)
Quarter: 2018Q4

REPORT INFORMATION
  Report Type: Spontaneous
  Country: US (occurrence: US)
  Receive Date: 20181012
  Receipt Date: 20181012
  Transmission Date: 20190205
  Serious: No
  Sender: FDA-Public Use
  Company Number: US-GLAXOSMITHKLINE-US2018181644

PATIENT

DRUGS (2)
  1. ALLI [Suspect]
     Active Substance: ORLISTAT
     Indication: WEIGHT LOSS DIET
     Dosage: 1 DF, UNK
  2. ALLI [Suspect]
     Active Substance: ORLISTAT
     Dosage: 2 DF, UNK

REACTIONS (3)
  - Treatment noncompliance [Unknown]
  - Anal incontinence [Unknown]
  - Rectal discharge [Unknown]
